FAERS Safety Report 4931670-7 (Version None)
Quarter: 2006Q1

REPORT INFORMATION
  Report Type: 
  Country: None (occurrence: None)
  Receive Date: 20060303
  Receipt Date: 20051229
  Transmission Date: 20060701
  Serious: No
  Sender: FDA-Public Use
  Company Number: US-BRISTOL-MYERS SQUIBB COMPANY-13231642

PATIENT
  Age: 68 Year
  Sex: Male
  Weight: 71 kg

DRUGS (5)
  1. ERBITUX [Suspect]
     Indication: COLON CANCER
     Dates: start: 20050801
  2. AVASTIN [Concomitant]
     Dates: start: 20050801
  3. IRINOTECAN HCL [Concomitant]
     Dates: start: 20050801
  4. ASPIRIN [Concomitant]
  5. IMODIUM [Concomitant]

REACTIONS (1)
  - RASH [None]
